FAERS Safety Report 6915490-X (Version None)
Quarter: 2010Q3

REPORT INFORMATION
  Report Type: 
  Country: None (occurrence: None)
  Receive Date: 20100806
  Receipt Date: 20100806
  Transmission Date: 20110219
  Serious: No
  Sender: FDA-Public Use
  Company Number: None

PATIENT
  Age: 82 Year
  Sex: Male
  Weight: 64.8 kg

DRUGS (2)
  1. ETANERCEPT [Suspect]
     Indication: PAIN
     Dosage: 50 MG QWEEK SQ
     Route: 058
     Dates: start: 20091030, end: 20100622
  2. ETANERCEPT [Suspect]
     Indication: RHEUMATOID ARTHRITIS
     Dosage: 50 MG QWEEK SQ
     Route: 058
     Dates: start: 20091030, end: 20100622

REACTIONS (3)
  - COUGH [None]
  - LARYNGOSPASM [None]
  - WHEEZING [None]
